FAERS Safety Report 16575761 (Version 1)
Quarter: 2019Q3

REPORT INFORMATION
  Report Type: Report from Study
  Country: US (occurrence: US)
  Receive Date: 20190716
  Receipt Date: 20190716
  Transmission Date: 20191004
  Serious: Yes (Other)
  Sender: FDA-Public Use
  Company Number: US-PFIZER INC-2017347227

PATIENT
  Age: 49 Year
  Sex: Female

DRUGS (10)
  1. IBRANCE [Suspect]
     Active Substance: PALBOCICLIB
     Dosage: 75 MG, DAILY
     Route: 048
     Dates: start: 20171218
  2. IBRANCE [Suspect]
     Active Substance: PALBOCICLIB
     Dosage: 75 MG, CYCLIC [DAILY, FOR 21DAYS OF 28 DAY CYCLE]
     Route: 048
     Dates: start: 20180802, end: 20180917
  3. IBRANCE [Suspect]
     Active Substance: PALBOCICLIB
     Indication: BREAST CANCER FEMALE
     Dosage: 125 MG, DAILY
     Route: 048
     Dates: start: 20170802, end: 20170828
  4. IBRANCE [Suspect]
     Active Substance: PALBOCICLIB
     Dosage: 75 MG, CYCLIC (75MG DAILY FOR 21 DAYS OF 28 DAY CYCLE RESUMED)
     Route: 048
     Dates: start: 2019, end: 20190321
  5. IBRANCE [Suspect]
     Active Substance: PALBOCICLIB
     Dosage: 75 MG, CYCLIC (75MG DAILY FOR 21 DAYS OF 28 DAY CYCLE RESUMED)
     Route: 048
     Dates: start: 20190404, end: 20190419
  6. IBRANCE [Suspect]
     Active Substance: PALBOCICLIB
     Dosage: 75 MG, DAILY
     Route: 048
     Dates: start: 20171109, end: 20171208
  7. IBRANCE [Suspect]
     Active Substance: PALBOCICLIB
     Dosage: 75 MG, CYCLIC (DAILY FOR 21 DAYS OF 28 DAY CYCLE)
     Route: 048
     Dates: start: 20190108, end: 2019
  8. IBRANCE [Suspect]
     Active Substance: PALBOCICLIB
     Dosage: 100 MG, DAILY
     Route: 048
     Dates: start: 20170829, end: 20171108
  9. IBRANCE [Suspect]
     Active Substance: PALBOCICLIB
     Dosage: 75 MG, CYCLIC, 21 DAYS ON, 7 OFF, ONCE A DAY
     Route: 048
     Dates: start: 20190116, end: 2019
  10. IBRANCE [Suspect]
     Active Substance: PALBOCICLIB
     Dosage: 75 MG, DAILY
     Route: 048
     Dates: start: 20190703

REACTIONS (13)
  - Neutropenia [Recovered/Resolved]
  - Contusion [Unknown]
  - Upper respiratory tract infection [Unknown]
  - Fatigue [Not Recovered/Not Resolved]
  - Thrombocytopenia [Unknown]
  - Arthralgia [Not Recovered/Not Resolved]
  - Bone marrow failure [Unknown]
  - Vomiting [Unknown]
  - Neutrophil count decreased [Unknown]
  - Pain [Unknown]
  - Neoplasm progression [Unknown]
  - Leukopenia [Unknown]
  - Nausea [Recovering/Resolving]

NARRATIVE: CASE EVENT DATE: 2017
